FAERS Safety Report 5368331-9 (Version None)
Quarter: 2007Q2

REPORT INFORMATION
  Report Type: 
  Country: None (occurrence: None)
  Receive Date: 20070625
  Receipt Date: 20070611
  Transmission Date: 20071010
  Serious: Yes (Death)
  Sender: FDA-Public Use
  Company Number: US-KINGPHARMUSA00001-K200700718

PATIENT

DRUGS (1)
  1. COLY-MYCIN M PARENTERAL [Suspect]

REACTIONS (4)
  - DEATH [None]
  - DEVICE MISUSE [None]
  - HAEMOPTYSIS [None]
  - LUNG DISORDER [None]
